FAERS Safety Report 9861264 (Version 2)
Quarter: 2014Q1

REPORT INFORMATION
  Report Type: Spontaneous
  Country: None (occurrence: US)
  Receive Date: 20140202
  Receipt Date: 20140202
  Transmission Date: 20141002
  Serious: No
  Sender: FDA-Public Use
  Company Number: US-ALLERGAN-1304565US

PATIENT
  Age: 40 Year
  Sex: Female

DRUGS (2)
  1. BOTOX COSMETIC [Suspect]
     Indication: SKIN WRINKLING
     Dosage: 20 UNITS, SINGLE
     Route: 030
     Dates: start: 20130313, end: 20130313
  2. ASPIRIN [Concomitant]
     Indication: PRODUCT USED FOR UNKNOWN INDICATION
     Dosage: UNK UNK, PRN
     Route: 048

REACTIONS (5)
  - Dizziness [Recovered/Resolved]
  - Eye swelling [Recovered/Resolved]
  - Asthenopia [Recovered/Resolved]
  - Injection site discomfort [Recovered/Resolved]
  - Dyspnoea [Recovered/Resolved]
